APPROVED DRUG PRODUCT: BUTORPHANOL TARTRATE
Active Ingredient: BUTORPHANOL TARTRATE
Strength: 1MG/ML
Dosage Form/Route: INJECTABLE;INJECTION
Application: A075342 | Product #001
Applicant: HOSPIRA INC
Approved: Nov 4, 1999 | RLD: No | RS: No | Type: DISCN